FAERS Safety Report 4732753-7 (Version None)
Quarter: 2005Q3

REPORT INFORMATION
  Report Type: 
  Country: None (occurrence: None)
  Receive Date: 20050803
  Receipt Date: 20050801
  Transmission Date: 20060218
  Serious: Yes (Other)
  Sender: FDA-Public Use
  Company Number: US-GLAXOSMITHKLINE-A0568476A

PATIENT
  Age: 70 Year
  Sex: Female

DRUGS (7)
  1. FLOVENT [Suspect]
     Indication: ASTHMA
     Route: 055
  2. PRILOSEC [Concomitant]
  3. FLONASE [Concomitant]
  4. MULTI-VITAMIN [Concomitant]
  5. OMEGA 3 FISH OIL [Concomitant]
     Indication: VITAMIN SUPPLEMENTATION
  6. ALLEGRA [Concomitant]
     Dosage: 180MG AS REQUIRED
  7. ALBUTEROL [Concomitant]

REACTIONS (4)
  - ASTHMA [None]
  - DYSGEUSIA [None]
  - DYSPHONIA [None]
  - PHARMACEUTICAL PRODUCT COMPLAINT [None]
